FAERS Safety Report 15204148 (Version 3)
Quarter: 2018Q3

REPORT INFORMATION
  Report Type: Report from Study
  Country: US (occurrence: US)
  Receive Date: 20180726
  Receipt Date: 20180829
  Transmission Date: 20181010
  Serious: No
  Sender: FDA-Public Use
  Company Number: US-GLAXOSMITHKLINE-US2018128806

PATIENT
  Age: 77 Year
  Sex: Female

DRUGS (2)
  1. BELIMUMAB POWDER FOR INFUSION [Suspect]
     Active Substance: BELIMUMAB
     Indication: SYSTEMIC LUPUS ERYTHEMATOSUS
     Dosage: UNK, CYC
     Route: 042
     Dates: start: 201806
  2. IRON [Concomitant]
     Active Substance: IRON

REACTIONS (11)
  - Rash [Unknown]
  - Alopecia [Not Recovered/Not Resolved]
  - Fatigue [Unknown]
  - Oral pain [Unknown]
  - Facial pain [Unknown]
  - Pain in extremity [Recovered/Resolved]
  - Diarrhoea [Not Recovered/Not Resolved]
  - Oral mucosal eruption [Not Recovered/Not Resolved]
  - Nausea [Unknown]
  - Mouth ulceration [Unknown]
  - Dizziness exertional [Unknown]

NARRATIVE: CASE EVENT DATE: 20180816
